FAERS Safety Report 6370635-8 (Version None)
Quarter: 2009Q3

REPORT INFORMATION
  Report Type: 
  Country: None (occurrence: None)
  Receive Date: 20090918
  Receipt Date: 20090908
  Transmission Date: 20100115
  Serious: Yes (Death, Hospitalization)
  Sender: FDA-Public Use
  Company Number: 2009AL005889

PATIENT
  Sex: Male

DRUGS (2)
  1. PROPRANOLOL HCL EXTENDED-RELEASE   (PROPRANOLOL HCL EXTENDED-RELEASE [Suspect]
  2. CARBIMAZOLE [Concomitant]

REACTIONS (24)
  - ABDOMINAL PAIN [None]
  - ASCITES [None]
  - ASPARTATE AMINOTRANSFERASE INCREASED [None]
  - ATRIAL FIBRILLATION [None]
  - BLOOD BILIRUBIN INCREASED [None]
  - BLOOD CREATININE INCREASED [None]
  - BLOOD PRESSURE DECREASED [None]
  - BLOOD SODIUM DECREASED [None]
  - CARDIAC FAILURE CONGESTIVE [None]
  - CARDIOMEGALY [None]
  - CARDIOMYOPATHY [None]
  - CARDIOVASCULAR INSUFFICIENCY [None]
  - DILATATION VENTRICULAR [None]
  - ELECTROMECHANICAL DISSOCIATION [None]
  - GENERAL PHYSICAL HEALTH DETERIORATION [None]
  - HEART RATE DECREASED [None]
  - HYPERTHYROIDISM [None]
  - LOBAR PNEUMONIA [None]
  - LOW CARDIAC OUTPUT SYNDROME [None]
  - ORTHOPNOEA [None]
  - PLEURAL EFFUSION [None]
  - PULMONARY OEDEMA [None]
  - THYROTOXIC CRISIS [None]
  - TREATMENT NONCOMPLIANCE [None]
